FAERS Safety Report 10136673 (Version 1)
Quarter: 2014Q2

REPORT INFORMATION
  Report Type: Spontaneous
  Country: US (occurrence: US)
  Receive Date: 20140429
  Receipt Date: 20140429
  Transmission Date: 20141212
  Serious: No
  Sender: FDA-Public Use
  Company Number: US-BAYER-2014-062696

PATIENT
  Age: 67 Year
  Sex: Male
  Weight: 64.85 kg

DRUGS (1)
  1. ALEVE CAPLET [Suspect]
     Indication: SINUS DISORDER
     Dosage: 1 DF, PRN
     Route: 048
     Dates: start: 2012

REACTIONS (3)
  - Therapeutic response changed [None]
  - Intentional product misuse [None]
  - Incorrect drug administration duration [None]
